FAERS Safety Report 5304432-9 (Version None)
Quarter: 2007Q2

REPORT INFORMATION
  Report Type: 
  Country: None (occurrence: None)
  Receive Date: 20070423
  Receipt Date: 20070416
  Transmission Date: 20071010
  Serious: Yes (Other)
  Sender: FDA-Public Use
  Company Number: US-BRISTOL-MYERS SQUIBB COMPANY-13753892

PATIENT

DRUGS (1)
  1. ABILIFY [Suspect]

REACTIONS (4)
  - ELECTROCARDIOGRAM QT CORRECTED INTERVAL PROLONGED [None]
  - FALL [None]
  - ORTHOSTATIC HYPOTENSION [None]
  - SEDATION [None]
